FAERS Safety Report 21681234 (Version 1)
Quarter: 2022Q4

REPORT INFORMATION
  Report Type: Spontaneous
  Country: US (occurrence: US)
  Receive Date: 20221205
  Receipt Date: 20221205
  Transmission Date: 20230112
  Serious: Yes (Other)
  Sender: FDA-Public Use
  Company Number: US-SA-SAC20221202000557

PATIENT
  Sex: Female
  Weight: 74.842 kg

DRUGS (2)
  1. DUPIXENT [Suspect]
     Active Substance: DUPILUMAB
     Indication: Dermatitis allergic
     Dosage: 300 MG, QOW
     Route: 058
     Dates: start: 202108
  2. DUPIXENT [Suspect]
     Active Substance: DUPILUMAB
     Indication: Drug therapy

REACTIONS (7)
  - Cataract [Unknown]
  - Arthropod bite [Unknown]
  - Pain [Unknown]
  - Ear injury [Unknown]
  - Skin swelling [Unknown]
  - Scab [Unknown]
  - Eye discharge [Unknown]
